FAERS Safety Report 14454911 (Version 1)
Quarter: 2018Q1

REPORT INFORMATION
  Report Type: Spontaneous
  Country: US (occurrence: US)
  Receive Date: 20180129
  Receipt Date: 20180129
  Transmission Date: 20180509
  Serious: Yes (Disabling, Other)
  Sender: FDA-Public Use
  Company Number: US-SA-2018SA020613

PATIENT
  Sex: Male

DRUGS (2)
  1. DUPIXENT [Suspect]
     Active Substance: DUPILUMAB
     Indication: DERMATITIS ATOPIC
     Route: 058
     Dates: start: 20170919
  2. DUPIXENT [Suspect]
     Active Substance: DUPILUMAB
     Indication: DERMATITIS ATOPIC
     Route: 058

REACTIONS (5)
  - Cerebral atrophy [Unknown]
  - Fall [Unknown]
  - Walking aid user [Unknown]
  - Concussion [Unknown]
  - Vertigo [Unknown]

NARRATIVE: CASE EVENT DATE: 201710
